FAERS Safety Report 5688301-0 (Version None)
Quarter: 2008Q1

REPORT INFORMATION
  Report Type: 
  Country: None (occurrence: None)
  Receive Date: 20080328
  Receipt Date: 20080328
  Transmission Date: 20080703
  Serious: No
  Sender: FDA-Public Use
  Company Number: None

PATIENT
  Age: 51 Year
  Sex: Female
  Weight: 68.0396 kg

DRUGS (1)
  1. CHANTIX [Suspect]
     Indication: SMOKING CESSATION THERAPY
     Dates: start: 20070715, end: 20070901

REACTIONS (4)
  - ABNORMAL DREAMS [None]
  - CONDITION AGGRAVATED [None]
  - DYSPHAGIA [None]
  - FIBROMYALGIA [None]
